FAERS Safety Report 4501041-6 (Version None)
Quarter: 2004Q4

REPORT INFORMATION
  Report Type: 
  Country: None (occurrence: None)
  Receive Date: 20041109
  Receipt Date: 20041025
  Transmission Date: 20050328
  Serious: Yes (Other)
  Sender: FDA-Public Use
  Company Number: USA041082135

PATIENT
  Age: 64 Year
  Sex: Female

DRUGS (2)
  1. CYMBALTA [Suspect]
     Indication: ANXIETY
     Dosage: 30 MG DAY
     Dates: start: 20041022, end: 20041023
  2. DIOVAN [Concomitant]

REACTIONS (1)
  - BLOOD PRESSURE INCREASED [None]
